FAERS Safety Report 7015451-9 (Version None)
Quarter: 2010Q3

REPORT INFORMATION
  Report Type: 
  Country: None (occurrence: None)
  Receive Date: 20100927
  Receipt Date: 20100922
  Transmission Date: 20110219
  Serious: Yes (Life-Threatening, Hospitalization)
  Sender: FDA-Public Use
  Company Number: PHHY2010GB07288

PATIENT
  Sex: Male

DRUGS (5)
  1. CLOZARIL [Suspect]
     Indication: SCHIZOPHRENIA
     Dosage: UNK
     Dates: start: 20070815
  2. CLOZARIL [Suspect]
     Dosage: 2 - 2.5 GM
     Dates: start: 20100204
  3. CLOZARIL [Suspect]
     Dosage: 400 MG, QD
     Route: 048
  4. LITHIUM [Concomitant]
     Dosage: 1000 MG, UNK
     Route: 048
  5. LAMOTRIGINE [Concomitant]
     Dosage: 150 MG, UNK
     Route: 048

REACTIONS (4)
  - AGITATION [None]
  - IRRITABILITY [None]
  - OVERDOSE [None]
  - RESPIRATORY DISTRESS [None]
